FAERS Safety Report 8914020 (Version 1)
Quarter: 2012Q4

REPORT INFORMATION
  Report Type: 
  Country: US (occurrence: US)
  Receive Date: 20121119
  Receipt Date: 20121119
  Transmission Date: 20130627
  Serious: No
  Sender: FDA-Public Use
  Company Number: US-009507513-1211USA005076

PATIENT
  Age: 62 Year
  Sex: Female

DRUGS (4)
  1. FOSAMAX [Suspect]
     Indication: OSTEOPENIA
     Dosage: 35 mg, qw
     Route: 048
  2. CALCIUM CITRATE (+) VITAMIN D (UNSPECIFIED) [Concomitant]
  3. CHONDROITIN SULFATE SODIUM (+) GLUCOSAMINE SULFATE [Concomitant]
  4. IBUPROFEN [Concomitant]

REACTIONS (1)
  - Blood potassium increased [Unknown]
